FAERS Safety Report 7240595-6 (Version None)
Quarter: 2011Q1

REPORT INFORMATION
  Report Type: 
  Country: None (occurrence: None)
  Receive Date: 20110118
  Receipt Date: 20110103
  Transmission Date: 20110831
  Serious: Yes (Hospitalization)
  Sender: FDA-Public Use
  Company Number: 2011AM003616

PATIENT
  Age: 53 Year
  Sex: Female
  Weight: 87.9978 kg

DRUGS (5)
  1. SYMLIN [Suspect]
     Indication: TYPE 2 DIABETES MELLITUS
     Dosage: 120 MCG, QID, SC; 60 MCG, QID, SC;
     Route: 058
     Dates: start: 20100601, end: 20101101
  2. SYMLIN [Suspect]
     Indication: TYPE 2 DIABETES MELLITUS
     Dosage: 120 MCG, QID, SC; 60 MCG, QID, SC;
     Route: 058
     Dates: start: 20101101
  3. APIDRA [Concomitant]
  4. LEVEMIR [Concomitant]
  5. PREDNISONE TAB [Concomitant]

REACTIONS (2)
  - BLOOD CREATININE INCREASED [None]
  - DIABETES MELLITUS INADEQUATE CONTROL [None]
